FAERS Safety Report 22851142 (Version 9)
Quarter: 2024Q1

REPORT INFORMATION
  Report Type: Report from Study
  Country: US (occurrence: US)
  Receive Date: 20230822
  Receipt Date: 20240314
  Transmission Date: 20240410
  Serious: Yes (Hospitalization)
  Sender: FDA-Public Use
  Company Number: US-ARGENX-2023-ARGX-US001402

PATIENT

DRUGS (15)
  1. VYVGART [Suspect]
     Active Substance: EFGARTIGIMOD ALFA-FCAB
     Indication: Myasthenia gravis
     Dosage: 700 MG, 1/WEEK, FOR 4 WEEKS PER CYCLE
     Route: 042
     Dates: start: 20230414
  2. VYVGART [Suspect]
     Active Substance: EFGARTIGIMOD ALFA-FCAB
     Dosage: 10 MG/KG
     Route: 042
     Dates: start: 20230509
  3. VYVGART [Suspect]
     Active Substance: EFGARTIGIMOD ALFA-FCAB
     Dosage: 700 MG UD
     Route: 042
     Dates: start: 20230414
  4. VYVGART [Suspect]
     Active Substance: EFGARTIGIMOD ALFA-FCAB
     Dosage: 10 MG/KG
     Route: 042
     Dates: start: 20230418
  5. VYVGART [Suspect]
     Active Substance: EFGARTIGIMOD ALFA-FCAB
     Dosage: UNK
     Route: 065
  6. VYVGART [Suspect]
     Active Substance: EFGARTIGIMOD ALFA-FCAB
     Dosage: 700 MG, QW FOR 4W THEN Q8-10W
     Route: 042
  7. DIPHENHYDRAMINE HYDROCHLORIDE [Concomitant]
     Active Substance: DIPHENHYDRAMINE HYDROCHLORIDE
     Indication: Product used for unknown indication
     Dosage: UNK
  8. EPINEPHRINE [Concomitant]
     Active Substance: EPINEPHRINE
     Indication: Product used for unknown indication
     Dosage: UNK
  9. SODIUM CHLORIDE [Concomitant]
     Active Substance: SODIUM CHLORIDE
     Indication: Product used for unknown indication
     Dosage: UNK
  10. PREDNISONE [Concomitant]
     Active Substance: PREDNISONE
     Indication: Product used for unknown indication
     Dosage: UNK
  11. FAMOTIDINE [Concomitant]
     Active Substance: FAMOTIDINE
     Indication: Product used for unknown indication
     Dosage: UNK
  12. LAMOTRIGINE [Concomitant]
     Active Substance: LAMOTRIGINE
     Indication: Product used for unknown indication
     Dosage: UNK
  13. SODIUM CHLORIDE [Concomitant]
     Active Substance: SODIUM CHLORIDE
     Indication: Product used for unknown indication
     Dosage: UNK
  14. ONDANSETRON [Concomitant]
     Active Substance: ONDANSETRON
     Indication: Product used for unknown indication
     Dosage: UNK
  15. VITAMINS [Concomitant]
     Active Substance: VITAMINS
     Indication: Product used for unknown indication
     Dosage: UNK

REACTIONS (26)
  - Chest discomfort [Unknown]
  - Dyspnoea [Unknown]
  - Respiratory tract infection [Unknown]
  - Urinary tract infection [Unknown]
  - Allergic respiratory symptom [Recovering/Resolving]
  - Respiratory tract infection [Recovering/Resolving]
  - Decreased appetite [Unknown]
  - Haematochezia [Recovered/Resolved]
  - Hemiparesis [Unknown]
  - Nausea [Unknown]
  - Chest pain [Unknown]
  - Fatigue [Unknown]
  - Fatigue [Unknown]
  - Myalgia [Unknown]
  - Nephrolithiasis [Unknown]
  - Pain [Unknown]
  - Productive cough [Unknown]
  - Chest pain [Recovered/Resolved]
  - Migraine [Unknown]
  - Fatigue [Unknown]
  - Sinusitis [Unknown]
  - Unevaluable event [Unknown]
  - Chest pain [Unknown]
  - Muscular weakness [Unknown]
  - Abdominal discomfort [Unknown]
  - Myasthenia gravis [Unknown]
